FAERS Safety Report 10870982 (Version 1)
Quarter: 2015Q1

REPORT INFORMATION
  Report Type: Report from Study
  Country: KR (occurrence: KR)
  Receive Date: 20150226
  Receipt Date: 20150226
  Transmission Date: 20150721
  Serious: Yes (Hospitalization)
  Sender: FDA-Public Use
  Company Number: KR-EISAI MEDICAL RESEARCH-E2007-01384-CLI-KR

PATIENT
  Age: 46 Year
  Sex: Female
  Weight: 66.5 kg

DRUGS (25)
  1. INSULIN LISPRO [Concomitant]
     Active Substance: INSULIN LISPRO
     Indication: DIABETES MELLITUS
     Route: 058
     Dates: start: 20130528
  2. INSULIN LISPRO [Concomitant]
     Active Substance: INSULIN LISPRO
     Route: 058
     Dates: start: 20140118, end: 2014
  3. AMLODIPINE [Concomitant]
     Active Substance: AMLODIPINE BESYLATE
     Dosage: 5 MG, AS A PART OF TELMISARTAN/AMLODIPINE
     Route: 048
     Dates: start: 20131002, end: 20131223
  4. VALSARTAN. [Concomitant]
     Active Substance: VALSARTAN
     Indication: HYPERTENSION
     Route: 048
     Dates: start: 20130926, end: 20131001
  5. CARVEDILOL. [Concomitant]
     Active Substance: CARVEDILOL
  6. PERAMPANEL [Suspect]
     Active Substance: PERAMPANEL
     Indication: PARTIAL SEIZURES
     Route: 048
     Dates: start: 20130712, end: 20131126
  7. SODIUM VALPROATE [Suspect]
     Active Substance: VALPROATE SODIUM
     Indication: EPILEPSY
     Route: 048
     Dates: start: 20130424
  8. INSULIN LISPRO [Concomitant]
     Active Substance: INSULIN LISPRO
     Route: 058
     Dates: start: 20140818
  9. PITAVASTATIN [Concomitant]
     Active Substance: PITAVASTATIN
     Indication: HYPERLIPIDAEMIA
     Route: 048
     Dates: start: 20130311
  10. INSULIN LISPRO [Concomitant]
     Active Substance: INSULIN LISPRO
     Route: 058
  11. TELMISARTAN. [Concomitant]
     Active Substance: TELMISARTAN
     Indication: HYPERTENSION
     Route: 048
     Dates: start: 20130916, end: 20130925
  12. TELMISARTAN. [Concomitant]
     Active Substance: TELMISARTAN
     Route: 048
     Dates: start: 20131002, end: 20131223
  13. METFORMIN [Concomitant]
     Active Substance: METFORMIN HYDROCHLORIDE
     Indication: DIABETES MELLITUS
     Route: 048
     Dates: start: 20130916
  14. AMLODIPINE [Concomitant]
     Active Substance: AMLODIPINE BESYLATE
     Indication: HYPERTENSION
     Route: 048
     Dates: start: 20130926, end: 20131001
  15. AMLODIPINE [Concomitant]
     Active Substance: AMLODIPINE BESYLATE
     Dosage: 5 MG, AS A PART OF TELMISARTAN/AMLODIPINE
     Route: 048
     Dates: start: 20130916, end: 20130925
  16. OLMESARTAN MEDOXOMIL/HYDROCHLOROTHIAZIDE [Concomitant]
     Active Substance: HYDROCHLOROTHIAZIDE\OLMESARTAN MEDOXOMIL
  17. ZOLPIDEM [Concomitant]
     Active Substance: ZOLPIDEM\ZOLPIDEM TARTRATE
  18. CARBAMAZEPINE. [Concomitant]
     Active Substance: CARBAMAZEPINE
     Indication: EPILEPSY
     Route: 048
     Dates: start: 20130206
  19. DIAZEPAM. [Concomitant]
     Active Substance: DIAZEPAM
     Indication: EPILEPSY
     Route: 048
     Dates: start: 20121207
  20. CHOLINE ALFOSCERATE [Concomitant]
     Active Substance: CHOLINE ALFOSCERATE
     Indication: NERVOUS SYSTEM DISORDER
     Route: 048
     Dates: start: 20121106
  21. PERAMPANEL [Suspect]
     Active Substance: PERAMPANEL
     Dosage: CONVERSION PHASE
     Route: 048
     Dates: start: 20131127, end: 20140225
  22. PERAMPANEL [Suspect]
     Active Substance: PERAMPANEL
     Route: 048
     Dates: start: 20140226
  23. LABETALOL HYDROCHLORIDE. [Concomitant]
     Active Substance: LABETALOL HYDROCHLORIDE
     Indication: HYPERTENSION
     Dosage: 10 MG/2ML/AM
     Route: 042
     Dates: start: 20131231, end: 20131231
  24. TELMISARTAN. [Concomitant]
     Active Substance: TELMISARTAN
     Dosage: UNKNOWN
  25. AMLODIPINE [Concomitant]
     Active Substance: AMLODIPINE BESYLATE
     Dosage: UNKNOWN
     Route: 048
     Dates: start: 20140818

REACTIONS (3)
  - Pyelonephritis acute [Recovered/Resolved]
  - Dysarthria [Recovered/Resolved]
  - Renal abscess [Recovered/Resolved]

NARRATIVE: CASE EVENT DATE: 20130923
